FAERS Safety Report 18973527 (Version 4)
Quarter: 2021Q2

REPORT INFORMATION
  Report Type: Spontaneous
  Country: US (occurrence: US)
  Receive Date: 20210305
  Receipt Date: 20210409
  Transmission Date: 20210717
  Serious: Yes (Other)
  Sender: FDA-Public Use
  Company Number: US-JNJFOC-20210303609

PATIENT
  Age: 56 Year
  Sex: Male
  Weight: 81.72 kg

DRUGS (4)
  1. INVEGA TRINZA [Suspect]
     Active Substance: PALIPERIDONE PALMITATE
  2. RISPERIDONE. [Concomitant]
     Active Substance: RISPERIDONE
  3. INVEGA TRINZA [Suspect]
     Active Substance: PALIPERIDONE PALMITATE
     Indication: SCHIZOPHRENIA
     Dosage: APPROXIMATE TOTAL NUMBER OF DOSES RECEIVED: 3
     Route: 030
  4. INVEGA TRINZA [Suspect]
     Active Substance: PALIPERIDONE PALMITATE

REACTIONS (2)
  - Drug ineffective [Unknown]
  - Schizophrenia [Recovered/Resolved]

NARRATIVE: CASE EVENT DATE: 202102
